FAERS Safety Report 14312740 (Version 1)
Quarter: 2017Q4

REPORT INFORMATION
  Report Type: Spontaneous
  Country: US (occurrence: US)
  Receive Date: 20171221
  Receipt Date: 20171221
  Transmission Date: 20180321
  Serious: No
  Sender: FDA-Public Use
  Company Number: US-BAYER-2017-246350

PATIENT
  Age: 65 Year
  Sex: Male
  Weight: 108.98 kg

DRUGS (1)
  1. LOTRIMIN ULTRA ANTIFUNGAL [Suspect]
     Active Substance: BUTENAFINE HYDROCHLORIDE
     Indication: THERAPEUTIC SKIN CARE TOPICAL
     Dosage: ;EVERY 6 TO 8 HOURS FOR ABOUT A WEEK DOSE
     Route: 061
     Dates: start: 201712, end: 20171218

REACTIONS (1)
  - Product use issue [Unknown]
